FAERS Safety Report 22970209 (Version 2)
Quarter: 2025Q3

REPORT INFORMATION
  Report Type: Report from Study
  Country: BR (occurrence: BR)
  Receive Date: 20230922
  Receipt Date: 20250826
  Transmission Date: 20251021
  Serious: Yes (Other)
  Sender: NOVARTIS
  Company Number: BR-002147023-NVSC2023BR202099

PATIENT
  Sex: Female

DRUGS (6)
  1. TEGRETOL XR [Suspect]
     Active Substance: CARBAMAZEPINE
     Indication: Product used for unknown indication
     Route: 065
     Dates: start: 2004
  2. TEGRETOL XR [Suspect]
     Active Substance: CARBAMAZEPINE
     Route: 065
  3. TEGRETOL XR [Suspect]
     Active Substance: CARBAMAZEPINE
     Route: 065
  4. TEGRETOL XR [Suspect]
     Active Substance: CARBAMAZEPINE
     Dosage: 1600 MG, QD
     Route: 065
  5. TEGRETOL XR [Suspect]
     Active Substance: CARBAMAZEPINE
     Dosage: 1000 MG, QD
     Route: 065
  6. TEGRETOL XR [Suspect]
     Active Substance: CARBAMAZEPINE
     Route: 065

REACTIONS (11)
  - Multiple sclerosis [Recovered/Resolved with Sequelae]
  - Blindness unilateral [Unknown]
  - Optic neuropathy [Unknown]
  - Cerebral disorder [Unknown]
  - Spinal fracture [Unknown]
  - Optic neuritis [Unknown]
  - Osteoporosis [Unknown]
  - Rash [Unknown]
  - Back pain [Unknown]
  - Eye injury [Unknown]
  - Hypoacusis [Unknown]

NARRATIVE: CASE EVENT DATE: 20210101
